FAERS Safety Report 8369346-9 (Version None)
Quarter: 2012Q2

REPORT INFORMATION
  Report Type: 
  Country: None (occurrence: None)
  Receive Date: 20120518
  Receipt Date: 20120514
  Transmission Date: 20120825
  Serious: Yes (Hospitalization)
  Sender: FDA-Public Use
  Company Number: PHHY2010DE38559

PATIENT
  Sex: Female
  Weight: 105 kg

DRUGS (2)
  1. EUTHYROX [Concomitant]
     Dosage: 100 UG, QD
  2. EXTAVIA [Suspect]
     Indication: RELAPSING-REMITTING MULTIPLE SCLEROSIS
     Dosage: 1 ML, QOD
     Route: 058
     Dates: start: 20090511

REACTIONS (10)
  - NYSTAGMUS [None]
  - HYPOAESTHESIA [None]
  - BALANCE DISORDER [None]
  - DIZZINESS [None]
  - DEPRESSION [None]
  - MULTIPLE SCLEROSIS RELAPSE [None]
  - NAUSEA [None]
  - GAIT DISTURBANCE [None]
  - DYSAESTHESIA [None]
  - NASOPHARYNGITIS [None]
